FAERS Safety Report 4673331-8 (Version None)
Quarter: 2005Q2

REPORT INFORMATION
  Report Type: 
  Country: None (occurrence: None)
  Receive Date: 20050524
  Receipt Date: 20050524
  Transmission Date: 20051028
  Serious: Yes (Hospitalization)
  Sender: FDA-Public Use
  Company Number: None

PATIENT
  Age: 61 Year
  Sex: Male
  Weight: 92.2 kg

DRUGS (14)
  1. SPIRONOLACTONE [Suspect]
     Indication: HEPATIC FAILURE
     Dosage: 100 MG DAILY
     Dates: start: 20030201, end: 20040301
  2. SPIRONOLACTONE [Suspect]
     Indication: HEPATIC FAILURE
     Dosage: 100 MG DAILY
     Dates: start: 20050101
  3. ALBUTEROL [Concomitant]
  4. BISACODYL [Concomitant]
  5. CYCLOPENTOLATE HCL [Concomitant]
  6. FOLIC ACID [Concomitant]
  7. FUROSEMIDE [Concomitant]
  8. OMEPRAZOLE [Concomitant]
  9. MAG OXIDE [Concomitant]
  10. NEOMYCIN [Concomitant]
  11. PROPRANOLOL [Concomitant]
  12. SIMETHICONE [Concomitant]
  13. BACTRIM DS [Concomitant]
  14. LACTULOSE [Concomitant]

REACTIONS (9)
  - ASTHENIA [None]
  - BLOOD PRESSURE SYSTOLIC DECREASED [None]
  - BRADYCARDIA [None]
  - DIFFICULTY IN WALKING [None]
  - HYPERKALAEMIA [None]
  - NEPHRITIS INTERSTITIAL [None]
  - NODAL RHYTHM [None]
  - PHYSICAL EXAMINATION ABNORMAL [None]
  - RENAL FAILURE ACUTE [None]
